FAERS Safety Report 18225913 (Version 1)
Quarter: 2020Q3

REPORT INFORMATION
  Report Type: Spontaneous
  Country: TN (occurrence: TN)
  Receive Date: 20200903
  Receipt Date: 20200903
  Transmission Date: 20201103
  Serious: Yes (Other)
  Sender: FDA-Public Use
  Company Number: TN-CHEPLA-C20202507

PATIENT
  Age: 33 Year
  Sex: Female

DRUGS (2)
  1. GANCICLOVIR. [Suspect]
     Active Substance: GANCICLOVIR
     Indication: CYTOMEGALOVIRUS CHORIORETINITIS
     Dosage: 2 DF (2 MG/0.1 ML) IN THE RIGHT EYE
     Route: 031
  2. GANCICLOVIR. [Suspect]
     Active Substance: GANCICLOVIR
     Indication: CYTOMEGALOVIRUS CHORIORETINITIS
     Dosage: 5 MG/KG, TWICE A DAY
     Route: 042

REACTIONS (3)
  - Incorrect route of product administration [Unknown]
  - Vogt-Koyanagi-Harada disease [Recovering/Resolving]
  - Disease recurrence [Recovering/Resolving]
